FAERS Safety Report 4540127-7 (Version None)
Quarter: 2004Q4

REPORT INFORMATION
  Report Type: 
  Country: None (occurrence: None)
  Receive Date: 20041222
  Receipt Date: 20041209
  Transmission Date: 20050328
  Serious: Yes (Hospitalization)
  Sender: FDA-Public Use
  Company Number: 2004VX000912

PATIENT
  Age: 68 Year
  Sex: Male

DRUGS (12)
  1. FLUOROURACIL [Suspect]
     Indication: HYPOPHARYNGEAL CANCER
     Dosage: 980 MG; INTRAVENOUS
     Route: 042
     Dates: start: 20041108, end: 20041112
  2. CISPLATIN [Suspect]
     Indication: HYPOPHARYNGEAL CANCER
     Dosage: 98 MG; INTRAVENOUS
     Route: 042
     Dates: start: 20041108, end: 20041108
  3. TAXOTERE [Suspect]
     Indication: HYPOPHARYNGEAL CANCER
     Dosage: 80 MG; INTRAVENOUS
     Route: 042
     Dates: start: 20041108, end: 20081108
  4. KYTRIL [Concomitant]
  5. PRIMPERAN INJ [Concomitant]
  6. LASIX [Concomitant]
  7. LACTEC [Concomitant]
  8. SOLITA-T3 INJECTION [Concomitant]
  9. GLIMICRON [Concomitant]
  10. LOXONIN [Concomitant]
  11. SELBEX [Concomitant]
  12. TEGRETOL [Concomitant]

REACTIONS (11)
  - ASTHENIA [None]
  - DIARRHOEA [None]
  - EATING DISORDER [None]
  - ELECTROCARDIOGRAM ABNORMAL [None]
  - ELECTROLYTE IMBALANCE [None]
  - FALL [None]
  - HYPERKALIURIA [None]
  - HYPOKALAEMIA [None]
  - HYPONATRAEMIA [None]
  - NAUSEA [None]
  - TONIC CONVULSION [None]
